FAERS Safety Report 9151059 (Version 1)
Quarter: 2013Q1

REPORT INFORMATION
  Report Type: Spontaneous
  Country: US (occurrence: US)
  Receive Date: 20130308
  Receipt Date: 20130308
  Transmission Date: 20140127
  Serious: No
  Sender: FDA-Public Use
  Company Number: US-GLAXOSMITHKLINE-A0969461A

PATIENT
  Age: 57 Year
  Sex: Female

DRUGS (11)
  1. NICORETTE [Suspect]
     Indication: EX-TOBACCO USER
  2. NICODERM CQ [Suspect]
     Indication: EX-TOBACCO USER
  3. NICODERM CQ [Suspect]
     Indication: EX-TOBACCO USER
     Dates: start: 20120220
  4. NICORETTE [Suspect]
     Indication: EX-TOBACCO USER
  5. IMDUR [Concomitant]
  6. ATENOLOL [Concomitant]
  7. LISINOPRIL [Concomitant]
  8. SANDOSTATIN [Concomitant]
  9. ASPIRIN [Concomitant]
  10. CO Q10 [Concomitant]
  11. VITAMINS [Concomitant]

REACTIONS (3)
  - Gastric disorder [Recovered/Resolved]
  - Drug administration error [Unknown]
  - Drug ineffective [Unknown]
